FAERS Safety Report 6699038-3 (Version None)
Quarter: 2010Q2

REPORT INFORMATION
  Report Type: 
  Country: None (occurrence: None)
  Receive Date: 20100427
  Receipt Date: 20100413
  Transmission Date: 20101027
  Serious: Yes (Other)
  Sender: FDA-Public Use
  Company Number: US-B.I. PHARMACEUTICALS,INC./RIDGEFIELD-2010-DE-02122GD

PATIENT
  Sex: Female

DRUGS (2)
  1. MIRAPEX [Suspect]
     Dosage: 3 MG
     Route: 048
  2. MIRAPEX [Suspect]
     Route: 048

REACTIONS (6)
  - AGITATION [None]
  - DIZZINESS [None]
  - DRUG DISPENSING ERROR [None]
  - LOSS OF CONSCIOUSNESS [None]
  - NAUSEA [None]
  - OVERDOSE [None]
